FAERS Safety Report 12598536 (Version 1)
Quarter: 2016Q3

REPORT INFORMATION
  Report Type: Spontaneous
  Country: US (occurrence: None)
  Receive Date: 20160726
  Receipt Date: 20160726
  Transmission Date: 20161109
  Serious: No
  Sender: FDA-Public Use
  Company Number: None

PATIENT
  Sex: Female

DRUGS (1)
  1. PRISTIQ EXTENDED-RELEASE [Suspect]
     Active Substance: DESVENLAFAXINE SUCCINATE

REACTIONS (7)
  - Diarrhoea [None]
  - Nausea [None]
  - Gastrointestinal pain [None]
  - Feeling abnormal [None]
  - Sleep disorder [None]
  - Flatulence [None]
  - Eructation [None]
